FAERS Safety Report 6024472-4 (Version None)
Quarter: 2008Q4

REPORT INFORMATION
  Report Type: 
  Country: None (occurrence: None)
  Receive Date: 20081231
  Receipt Date: 20080922
  Transmission Date: 20090506
  Serious: No
  Sender: FDA-Public Use
  Company Number: US-BRISTOL-MYERS SQUIBB COMPANY-14318166

PATIENT
  Age: 38 Year
  Sex: Female
  Weight: 63 kg

DRUGS (8)
  1. ORENCIA [Suspect]
     Indication: RHEUMATOID ARTHRITIS
     Dosage: 2ND INFUSION SCHEDULED ON 10-SEP-2008
     Dates: start: 20080827
  2. PREDNISONE [Concomitant]
  3. FOLIC ACID [Concomitant]
  4. METHOTREXATE [Concomitant]
  5. ZOLOFT [Concomitant]
  6. CALCIUM [Concomitant]
  7. ULTRAM [Concomitant]
  8. ACETAMINOPHEN [Concomitant]

REACTIONS (1)
  - INFUSION SITE PAIN [None]
